FAERS Safety Report 8095759-9 (Version None)
Quarter: 2012Q1

REPORT INFORMATION
  Report Type: 
  Country: None (occurrence: None)
  Receive Date: 20120129
  Receipt Date: 20111227
  Transmission Date: 20120608
  Serious: No
  Sender: FDA-Public Use
  Company Number: US-ABBOTT-11P-163-0886876-00

PATIENT
  Sex: Female
  Weight: 80.812 kg

DRUGS (4)
  1. HUMIRA [Suspect]
     Indication: CROHN'S DISEASE
     Dates: start: 20110601
  2. PRILOSEC [Concomitant]
     Indication: GASTROOESOPHAGEAL REFLUX DISEASE
  3. VITAMIN B-12 [Concomitant]
     Indication: VITAMIN B12 DEFICIENCY
  4. IMODIUM [Concomitant]
     Indication: CROHN'S DISEASE

REACTIONS (4)
  - INJECTION SITE PRURITUS [None]
  - INJECTION SITE ERYTHEMA [None]
  - INJECTION SITE PAPULE [None]
  - INJECTION SITE REACTION [None]
